FAERS Safety Report 13333981 (Version 4)
Quarter: 2017Q4

REPORT INFORMATION
  Report Type: Spontaneous
  Country: US (occurrence: US)
  Receive Date: 20170313
  Receipt Date: 20171114
  Transmission Date: 20180320
  Serious: No
  Sender: FDA-Public Use
  Company Number: US-ACTELION-A-US2016-138253

PATIENT
  Age: 71 Year
  Sex: Female

DRUGS (13)
  1. ZANTAC [Concomitant]
     Active Substance: RANITIDINE HYDROCHLORIDE
  2. LOMOTIL [Concomitant]
     Active Substance: ATROPINE SULFATE\DIPHENOXYLATE HYDROCHLORIDE
  3. ZOFRAN [Concomitant]
     Active Substance: ONDANSETRON HYDROCHLORIDE
  4. DIGOXIN. [Concomitant]
     Active Substance: DIGOXIN
  5. VITAMIN B12 [Concomitant]
     Active Substance: CYANOCOBALAMIN
  6. OPSUMIT [Suspect]
     Active Substance: MACITENTAN
     Indication: PULMONARY HYPERTENSION
     Dosage: 10 MG, QD
     Route: 048
     Dates: start: 20141007
  7. ADCIRCA [Concomitant]
     Active Substance: TADALAFIL
  8. POTASSIUM [Concomitant]
     Active Substance: POTASSIUM
  9. ZYRTEC [Concomitant]
     Active Substance: CETIRIZINE HYDROCHLORIDE
  10. FOLIC ACID. [Concomitant]
     Active Substance: FOLIC ACID
  11. REMODULIN [Concomitant]
     Active Substance: TREPROSTINIL
     Indication: PRODUCT USED FOR UNKNOWN INDICATION
     Dosage: 14.5 NG/KG, PER MIN
     Route: 065
     Dates: start: 20121228
  12. LASIX [Concomitant]
     Active Substance: FUROSEMIDE
  13. REMODULIN [Concomitant]
     Active Substance: TREPROSTINIL
     Dosage: 13.5 NG/KG, PER MIN
     Route: 065
     Dates: start: 20121228

REACTIONS (7)
  - Dyspnoea [Recovered/Resolved]
  - Insomnia [Unknown]
  - Scleroderma [Unknown]
  - Diarrhoea [Unknown]
  - Dizziness [Unknown]
  - Gait disturbance [Unknown]
  - Nervousness [Unknown]

NARRATIVE: CASE EVENT DATE: 20170308
